FAERS Safety Report 7854467-7 (Version None)
Quarter: 2011Q4

REPORT INFORMATION
  Report Type: 
  Country: None (occurrence: None)
  Receive Date: 20111026
  Receipt Date: 20111018
  Transmission Date: 20120403
  Serious: Yes (Other)
  Sender: FDA-Public Use
  Company Number: BR-PFIZER INC-2011251253

PATIENT
  Age: 42 Year
  Sex: Female

DRUGS (4)
  1. LEXAPRO [Interacting]
     Dosage: UNK
     Dates: end: 20110101
  2. LYRICA [Suspect]
     Indication: FIBROMYALGIA
     Dosage: 75 MG, 1 CAPSULE DAILY
     Route: 048
     Dates: start: 20110101, end: 20110101
  3. LYRICA [Interacting]
     Dosage: 150MG (TWO CAPSULES OF 75MG), DAILY
     Route: 048
     Dates: start: 20110101, end: 20110101
  4. ALPRAZOLAM [Interacting]
     Dosage: UNK
     Dates: end: 20110101

REACTIONS (1)
  - DRUG INTERACTION [None]
